FAERS Safety Report 7691901-X (Version None)
Quarter: 2011Q3

REPORT INFORMATION
  Report Type: 
  Country: None (occurrence: None)
  Receive Date: 20110818
  Receipt Date: 20110729
  Transmission Date: 20111222
  Serious: Yes (Other)
  Sender: FDA-Public Use
  Company Number: PHHY2011BR69277

PATIENT
  Sex: Female

DRUGS (5)
  1. DRAMIN B-6 [Concomitant]
  2. CLONAZEPAM [Concomitant]
     Dosage: 2 MG, UNK
  3. FLUOXETINE [Concomitant]
  4. DETAFARQUE [Concomitant]
  5. DIOVAN HCT [Suspect]
     Dosage: UNK UKN, UNK

REACTIONS (7)
  - WEIGHT INCREASED [None]
  - HYPERSENSITIVITY [None]
  - VIRAL INFECTION [None]
  - DRUG INEFFECTIVE [None]
  - BLOOD PRESSURE DECREASED [None]
  - HYPERTENSION [None]
  - LIMB DISCOMFORT [None]
